FAERS Safety Report 8439759-5 (Version None)
Quarter: 2012Q2

REPORT INFORMATION
  Report Type: 
  Country: None (occurrence: None)
  Receive Date: 20120615
  Receipt Date: 20120612
  Transmission Date: 20120825
  Serious: Yes (Other)
  Sender: FDA-Public Use
  Company Number: JP-NAPPMUNDI-MAG-2012-0002196

PATIENT
  Sex: Female

DRUGS (5)
  1. NIFEDIPINE [Suspect]
     Dosage: 20 MG, DAILY
     Route: 048
     Dates: start: 20120315, end: 20120519
  2. VALTREX [Concomitant]
  3. THEOPHYLLINE [Suspect]
     Indication: PRODUCT USED FOR UNKNOWN INDICATION
     Dosage: 400 MG, DAILY
     Route: 048
     Dates: start: 20120315, end: 20120519
  4. MEPIVACAINE HCL [Suspect]
     Dosage: 10 MG, DAILY
     Route: 048
     Dates: start: 20120315, end: 20120519
  5. REBAMIPIDE [Suspect]
     Dosage: 300 MG, DAILY
     Route: 048
     Dates: start: 20120315, end: 20120519

REACTIONS (2)
  - URTICARIA [None]
  - OEDEMA [None]
